FAERS Safety Report 11907636 (Version 1)
Quarter: 2016Q1

REPORT INFORMATION
  Report Type: Spontaneous
  Country: US (occurrence: US)
  Receive Date: 20160111
  Receipt Date: 20160111
  Transmission Date: 20160526
  Serious: No
  Sender: FDA-Public Use
  Company Number: US-ABBVIE-15P-163-1523638-00

PATIENT
  Age: 70 Year
  Sex: Female
  Weight: 84.9 kg

DRUGS (1)
  1. DUODOPA [Suspect]
     Active Substance: CARBIDOPA\LEVODOPA
     Indication: PARKINSON^S DISEASE
     Route: 050
     Dates: start: 2010

REACTIONS (2)
  - Arthralgia [Recovered/Resolved]
  - Blood lactic acid increased [Recovered/Resolved]

NARRATIVE: CASE EVENT DATE: 201511
